FAERS Safety Report 5481272-1 (Version None)
Quarter: 2007Q4

REPORT INFORMATION
  Report Type: 
  Country: None (occurrence: None)
  Receive Date: 20071010
  Receipt Date: 20060731
  Transmission Date: 20080405
  Serious: Yes (Other)
  Sender: FDA-Public Use
  Company Number: BR-NOVOPROD-254804

PATIENT
  Age: 43 Year
  Sex: Male
  Weight: 73 kg

DRUGS (1)
  1. NOVOSEVEN [Suspect]
     Indication: SURGERY

REACTIONS (1)
  - MYOCARDIAL ISCHAEMIA [None]
